FAERS Safety Report 9879263 (Version 2)
Quarter: 2014Q2

REPORT INFORMATION
  Report Type: Spontaneous
  Country: FR (occurrence: FR)
  Receive Date: 20140206
  Receipt Date: 20140415
  Transmission Date: 20141212
  Serious: Yes (Other)
  Sender: FDA-Public Use
  Company Number: FR-JNJFOC-20140203454

PATIENT
  Age: 79 Year
  Sex: Male

DRUGS (3)
  1. XARELTO [Suspect]
     Indication: SUPRAVENTRICULAR EXTRASYSTOLES
     Route: 048
     Dates: start: 20131022, end: 20131028
  2. CRESTOR [Concomitant]
     Route: 065
  3. FLECAINE [Concomitant]
     Route: 065

REACTIONS (7)
  - Epididymitis [Recovered/Resolved]
  - Immune reconstitution inflammatory syndrome [Recovered/Resolved]
  - Arthritis [Recovered/Resolved]
  - General physical health deterioration [Unknown]
  - Melaena [Unknown]
  - Myalgia [Recovered/Resolved]
  - Off label use [Unknown]
